FAERS Safety Report 4661546-4 (Version None)
Quarter: 2005Q2

REPORT INFORMATION
  Report Type: 
  Country: None (occurrence: None)
  Receive Date: 20050502
  Receipt Date: 20050110
  Transmission Date: 20051028
  Serious: No
  Sender: FDA-Public Use
  Company Number: 200510201US

PATIENT
  Age: 55 Year
  Sex: Male

DRUGS (2)
  1. KETEK [Suspect]
     Indication: SINUSITIS
     Dosage: 800 MG QD PO
     Route: 048
     Dates: start: 20041111, end: 20041112
  2. GUAIFENESIN [Concomitant]

REACTIONS (2)
  - ABDOMINAL PAIN UPPER [None]
  - VISION BLURRED [None]
